FAERS Safety Report 7917227-4 (Version None)
Quarter: 2011Q4

REPORT INFORMATION
  Report Type: 
  Country: None (occurrence: None)
  Receive Date: 20111116
  Receipt Date: 20111110
  Transmission Date: 20120403
  Serious: No
  Sender: FDA-Public Use
  Company Number: JP-SANOFI-AVENTIS-2011SA071121

PATIENT
  Age: 58 Year
  Sex: Male

DRUGS (7)
  1. PACLITAXEL [Concomitant]
     Route: 065
  2. CISPLATIN [Suspect]
     Dosage: DOSE : 60MG/BODY
     Route: 042
     Dates: end: 20070417
  3. ALL OTHER THERAPEUTIC PRODUCTS [Concomitant]
     Route: 065
  4. TAXOTERE [Suspect]
     Dosage: DOSE : 40MG/BODY, TAKEN ONCE EVERY TWO WEEKS
     Route: 042
     Dates: end: 20070419
  5. CISPLATIN [Suspect]
     Dosage: DOSE : 60MG/BODY
     Route: 042
     Dates: start: 20070403
  6. TAXOTERE [Suspect]
     Dosage: TAKEN ONCE EVERY TWO WEEKS
     Route: 042
     Dates: start: 20070403
  7. CARBOPLATIN [Concomitant]

REACTIONS (1)
  - BRONCHIAL ULCERATION [None]
